FAERS Safety Report 23773341 (Version 1)
Quarter: 2024Q2

REPORT INFORMATION
  Report Type: Spontaneous
  Country: US (occurrence: US)
  Receive Date: 20240423
  Receipt Date: 20240423
  Transmission Date: 20240716
  Serious: No
  Sender: FDA-Public Use
  Company Number: US-002147023-NVSC2024US085672

PATIENT
  Sex: Female

DRUGS (3)
  1. LEQVIO [Suspect]
     Active Substance: INCLISIRAN SODIUM
     Indication: Product used for unknown indication
     Dosage: 284 MG, EVERY 6 MONTHS
     Route: 065
     Dates: start: 20240126
  2. LEQVIO [Suspect]
     Active Substance: INCLISIRAN SODIUM
     Dosage: UNK (SECOND DOSE)
     Route: 065
     Dates: start: 20240415
  3. LEQVIO [Suspect]
     Active Substance: INCLISIRAN SODIUM
     Dosage: UNK (THIRD DOSE)
     Route: 065
     Dates: start: 20240422

REACTIONS (2)
  - Accidental overdose [Unknown]
  - Wrong technique in product usage process [Unknown]
